FAERS Safety Report 6913937-6 (Version None)
Quarter: 2010Q3

REPORT INFORMATION
  Report Type: 
  Country: None (occurrence: None)
  Receive Date: 20100809
  Receipt Date: 20100803
  Transmission Date: 20110219
  Serious: Yes (Other)
  Sender: FDA-Public Use
  Company Number: PL-SANOFI-AVENTIS-2010SA045477

PATIENT
  Age: 78 Year
  Sex: Female

DRUGS (7)
  1. MULTAQ [Suspect]
     Route: 048
     Dates: start: 20100501
  2. BETALOC [Concomitant]
     Indication: HYPERTENSION
     Route: 048
  3. PRINIVIL [Concomitant]
     Indication: HYPERTENSION
     Route: 048
  4. AMLOZEK [Concomitant]
     Indication: HYPERTENSION
     Route: 048
  5. KALIUM RETARD [Concomitant]
     Indication: PRODUCT USED FOR UNKNOWN INDICATION
     Route: 048
  6. MAGNESIUM [Concomitant]
     Indication: PRODUCT USED FOR UNKNOWN INDICATION
     Route: 048
  7. LESCOL [Concomitant]
     Indication: PROPHYLAXIS
     Route: 048

REACTIONS (1)
  - ATRIAL FIBRILLATION [None]
